FAERS Safety Report 19681766 (Version 1)
Quarter: 2021Q3

REPORT INFORMATION
  Report Type: Spontaneous
  Country: ES (occurrence: ES)
  Receive Date: 20210810
  Receipt Date: 20210810
  Transmission Date: 20211014
  Serious: Yes (Other)
  Sender: FDA-Public Use
  Company Number: ES-PURDUE-USA-2021-0281310

PATIENT
  Age: 94 Year
  Sex: Male

DRUGS (1)
  1. MST CONTINUS [Suspect]
     Active Substance: MORPHINE SULFATE
     Indication: PRODUCT USED FOR UNKNOWN INDICATION
     Dosage: 10 MG, Q4H [TIME INTERVAL BETWEEN BEGINNING OF DRUG ADMINISTRATION ANDEND OF REACTION/EVENT: 1(D)]
     Route: 048
     Dates: start: 202106, end: 20210622

REACTIONS (4)
  - Hyporesponsive to stimuli [Unknown]
  - Myoclonus [Unknown]
  - Medication error [Unknown]
  - Disorientation [Unknown]

NARRATIVE: CASE EVENT DATE: 20210622
